FAERS Safety Report 8617852-1 (Version None)
Quarter: 2012Q3

REPORT INFORMATION
  Report Type: 
  Country: None (occurrence: None)
  Receive Date: 20120824
  Receipt Date: 20120221
  Transmission Date: 20120928
  Serious: No
  Sender: FDA-Public Use
  Company Number: US-ASTRAZENECA-2012SE11834

PATIENT
  Sex: Female

DRUGS (3)
  1. SYMBICORT [Suspect]
     Dosage: 2 PUFFS IN THE MORNING
     Route: 055
  2. SYMBICORT [Suspect]
     Dosage: 2 PUFFS AT NIGHT
     Route: 055
  3. PROAIR HFA [Concomitant]

REACTIONS (3)
  - DRUG EFFECT DECREASED [None]
  - RESTLESSNESS [None]
  - SLEEP DISORDER DUE TO GENERAL MEDICAL CONDITION, INSOMNIA TYPE [None]
